FAERS Safety Report 5004363-8 (Version None)
Quarter: 2006Q2

REPORT INFORMATION
  Report Type: 
  Country: None (occurrence: None)
  Receive Date: 20060517
  Receipt Date: 20060511
  Transmission Date: 20061013
  Serious: Yes (Other)
  Sender: FDA-Public Use
  Company Number: GB-GLAXOSMITHKLINE-B0423559A

PATIENT
  Age: 50 Year
  Sex: Male
  Weight: 16 kg

DRUGS (7)
  1. ROSIGLITAZONE [Suspect]
     Indication: DIABETES MELLITUS
     Dosage: 4MG PER DAY
     Route: 048
     Dates: start: 20060119, end: 20060315
  2. ISOSORBIDE MONONITRATE [Concomitant]
     Indication: ANGINA PECTORIS
     Dosage: 30MG PER DAY
     Route: 048
     Dates: start: 20010101
  3. ATORVASTATIN CALCIUM [Concomitant]
     Indication: MYOCARDIAL ISCHAEMIA
     Dosage: 10MG PER DAY
     Route: 048
     Dates: start: 20010101
  4. ATENOLOL [Concomitant]
     Indication: MYOCARDIAL ISCHAEMIA
     Dosage: 100MG PER DAY
     Route: 048
     Dates: start: 20010101
  5. NICORANDIL [Concomitant]
     Indication: MYOCARDIAL ISCHAEMIA
     Dosage: 10MG PER DAY
     Route: 048
     Dates: start: 20010101
  6. METFORMIN [Concomitant]
     Indication: DIABETES MELLITUS
     Dosage: 1G PER DAY
     Route: 048
     Dates: start: 20050101
  7. ASPIRIN [Concomitant]
     Dosage: 75MG PER DAY
     Route: 065

REACTIONS (2)
  - AGEUSIA [None]
  - ANOSMIA [None]
